FAERS Safety Report 6908280-5 (Version None)
Quarter: 2010Q3

REPORT INFORMATION
  Report Type: 
  Country: None (occurrence: None)
  Receive Date: 20100805
  Receipt Date: 20100727
  Transmission Date: 20110219
  Serious: Yes (Disabling)
  Sender: FDA-Public Use
  Company Number: FR-ROCHE-717596

PATIENT
  Sex: Female
  Weight: 52 kg

DRUGS (6)
  1. PEGINTERFERON ALFA-2A [Suspect]
     Dosage: STRENTGH: 180UG/ML
     Route: 058
     Dates: start: 20090608, end: 20090622
  2. RIBAVIRIN [Suspect]
     Route: 048
     Dates: start: 20090608, end: 20090622
  3. BI 201335 [Suspect]
     Dosage: LOADING DOSE
     Route: 048
     Dates: start: 20090608
  4. BI 201335 [Suspect]
     Route: 048
     Dates: end: 20100621
  5. PARACETAMOL [Concomitant]
     Indication: HEADACHE
     Dosage: 2 GRAM (500 MG).
     Route: 048
     Dates: start: 20090608
  6. VOGALENE [Concomitant]
     Indication: NAUSEA
     Dosage: 30 MG (15 MG)
     Route: 048
     Dates: start: 20090611, end: 20090706

REACTIONS (5)
  - CHEILITIS [None]
  - OEDEMA PERIPHERAL [None]
  - PHOTOSENSITIVITY REACTION [None]
  - RASH MACULO-PAPULAR [None]
  - SUNBURN [None]
